FAERS Safety Report 10004701 (Version 1)
Quarter: 2014Q1

REPORT INFORMATION
  Report Type: Spontaneous
  Country: GB (occurrence: GB)
  Receive Date: 20140312
  Receipt Date: 20140312
  Transmission Date: 20141002
  Serious: Yes (Other)
  Sender: FDA-Public Use
  Company Number: GB-TEVA-465564ISR

PATIENT
  Age: 53 Year
  Sex: Female
  Weight: 65.77 kg

DRUGS (2)
  1. RAMIPRIL [Suspect]
     Indication: HYPERTENSION
     Route: 048
  2. CITALOPRAM [Concomitant]

REACTIONS (2)
  - Cough [Recovering/Resolving]
  - Wheezing [Recovering/Resolving]
